FAERS Safety Report 5525677-9 (Version None)
Quarter: 2007Q4

REPORT INFORMATION
  Report Type: 
  Country: None (occurrence: None)
  Receive Date: 20071126
  Receipt Date: 20071112
  Transmission Date: 20080405
  Serious: Yes (Hospitalization)
  Sender: FDA-Public Use
  Company Number: BR-MERCK-0711BRA00018

PATIENT
  Age: 53 Year
  Sex: Male

DRUGS (5)
  1. JANUVIA [Suspect]
     Route: 048
  2. METFORMIN [Concomitant]
     Indication: DIABETES MELLITUS
     Route: 065
  3. INSULIN [Concomitant]
     Indication: DIABETES MELLITUS
     Route: 065
  4. HYDROCHLOROTHIAZIDE AND LOSARTAN POTASSIUM [Concomitant]
     Indication: HYPERTENSION
     Route: 047
  5. AMLODIPINE BESYLATE [Concomitant]
     Indication: HYPERTENSION
     Route: 065

REACTIONS (1)
  - PANCREATITIS ACUTE [None]
